FAERS Safety Report 5974979-0 (Version None)
Quarter: 2008Q4

REPORT INFORMATION
  Report Type: 
  Country: None (occurrence: None)
  Receive Date: 20081128
  Receipt Date: 20081120
  Transmission Date: 20090506
  Serious: Yes (Death)
  Sender: FDA-Public Use
  Company Number: TW-JNJFOC-20081102552

PATIENT
  Age: 70 Year
  Sex: Male

DRUGS (5)
  1. DECITABINE (DECITABINE) LYOPHILIZED [Suspect]
     Indication: ACUTE MYELOID LEUKAEMIA
     Dosage: 20MG/M2, 1 IN 1 DAY, INTRAVENOUS;20 MG/M2, 1 IN 1 DAY, INTRAVENOUS; 20 MG/M2, 1 IN 1 DAY, INTRAVENOU
     Route: 042
     Dates: start: 20080918, end: 20080922
  2. DECITABINE (DECITABINE) LYOPHILIZED [Suspect]
     Indication: ACUTE MYELOID LEUKAEMIA
     Dosage: 20MG/M2, 1 IN 1 DAY, INTRAVENOUS;20 MG/M2, 1 IN 1 DAY, INTRAVENOUS; 20 MG/M2, 1 IN 1 DAY, INTRAVENOU
     Route: 042
     Dates: start: 20081016, end: 20081020
  3. DECITABINE (DECITABINE) LYOPHILIZED [Suspect]
     Indication: ACUTE MYELOID LEUKAEMIA
     Dosage: 20MG/M2, 1 IN 1 DAY, INTRAVENOUS;20 MG/M2, 1 IN 1 DAY, INTRAVENOUS; 20 MG/M2, 1 IN 1 DAY, INTRAVENOU
     Route: 042
     Dates: start: 20080821
  4. MYCOSTATIN (NYSTATIN) UNSPECIFIED [Concomitant]
  5. FARLUTAL (MEDROXYPROGESTERONE ACETATE) UNSPECIFIED [Concomitant]

REACTIONS (31)
  - BACTERIA STOOL IDENTIFIED [None]
  - BLOOD POTASSIUM DECREASED [None]
  - BLOOD SODIUM DECREASED [None]
  - BLOOD UREA INCREASED [None]
  - CAECITIS [None]
  - CHOLELITHIASIS [None]
  - CLOSTRIDIAL INFECTION [None]
  - COLITIS [None]
  - COLON CANCER [None]
  - CULTURE [None]
  - DIARRHOEA HAEMORRHAGIC [None]
  - HAEMATURIA [None]
  - HAEMOGLOBIN DECREASED [None]
  - HAEMORRHOIDS [None]
  - HEPATIC CANCER METASTATIC [None]
  - ILEUS [None]
  - LIVER ABSCESS [None]
  - LUNG INFECTION [None]
  - LUNG INFILTRATION [None]
  - LYMPHOMA [None]
  - NAUSEA [None]
  - NEUTROPENIA [None]
  - ORAL CANDIDIASIS [None]
  - PNEUMONIA [None]
  - PROSTATOMEGALY [None]
  - SEPSIS [None]
  - THROMBOCYTOPENIA [None]
  - URINARY RETENTION [None]
  - URINARY TRACT INFECTION ENTEROCOCCAL [None]
  - VOMITING [None]
  - WHITE BLOOD CELL COUNT DECREASED [None]
